FAERS Safety Report 21719882 (Version 1)
Quarter: 2022Q4

REPORT INFORMATION
  Report Type: Other
  Country: US (occurrence: US)
  Receive Date: 20221213
  Receipt Date: 20221213
  Transmission Date: 20230113
  Serious: Yes (Death, Hospitalization, Other)
  Sender: FDA-Public Use
  Company Number: US-HLS-202104141

PATIENT
  Age: 50 Year
  Sex: Female

DRUGS (2)
  1. CLOZAPINE [Suspect]
     Active Substance: CLOZAPINE
     Indication: Schizophrenia
     Dosage: 175 MG DAILIY: OCT-2019
     Route: 065
  2. QUETIAPINE [Concomitant]
     Active Substance: QUETIAPINE
     Route: 065

REACTIONS (10)
  - Chest X-ray abnormal [Unknown]
  - Cough [Unknown]
  - Death [Fatal]
  - Pyrexia [Unknown]
  - Hypotension [Unknown]
  - Respiratory failure [Unknown]
  - Pulmonary embolism [Unknown]
  - Respiratory distress [Unknown]
  - Vaginal haemorrhage [Unknown]
  - Dyspnoea [Unknown]
